FAERS Safety Report 9303956 (Version 3)
Quarter: 2014Q4

REPORT INFORMATION
  Report Type: Spontaneous
  Country: US (occurrence: US)
  Receive Date: 20130522
  Receipt Date: 20141107
  Transmission Date: 20150529
  Serious: Yes (Hospitalization, Other)
  Sender: FDA-Public Use
  Company Number: US-009507513-1305USA011628

PATIENT
  Sex: Male
  Weight: 74.83 kg

DRUGS (2)
  1. PROSCAR [Suspect]
     Active Substance: FINASTERIDE
     Indication: BENIGN PROSTATIC HYPERPLASIA
     Dosage: 5 MG, QD
     Route: 048
     Dates: start: 20020409, end: 20110525
  2. FINASTERIDE. [Suspect]
     Active Substance: FINASTERIDE
     Indication: BENIGN PROSTATIC HYPERPLASIA
     Dosage: 5 MG, QD
     Route: 048
     Dates: start: 20020409, end: 20110525

REACTIONS (20)
  - Coronary artery bypass [Unknown]
  - Cardiac failure congestive [Unknown]
  - Breast cancer [Not Recovered/Not Resolved]
  - Inguinal hernia repair [Unknown]
  - Epididymitis [Unknown]
  - Prostatic pain [Unknown]
  - Coronary artery disease [Unknown]
  - Left ventricular failure [Unknown]
  - Osteoarthritis [Unknown]
  - Myocardial infarction [Unknown]
  - Chronic kidney disease [Unknown]
  - Prostatitis [Unknown]
  - Gynaecomastia [Unknown]
  - Mastectomy [Unknown]
  - Neuropathy peripheral [Unknown]
  - Back pain [Unknown]
  - Cardiac operation [Unknown]
  - Aortic valve replacement [Unknown]
  - Carotid artery stenosis [Unknown]
  - Cardiomyopathy [Unknown]

NARRATIVE: CASE EVENT DATE: 2002
